FAERS Safety Report 15357491 (Version 1)
Quarter: 2018Q3

REPORT INFORMATION
  Report Type: Spontaneous
  Country: GB (occurrence: PT)
  Receive Date: 20180906
  Receipt Date: 20180906
  Transmission Date: 20181010
  Serious: Yes (Other)
  Sender: FDA-Public Use
  Company Number: PT-FRESENIUS KABI-FK201809235

PATIENT
  Age: 56 Year
  Sex: Female

DRUGS (2)
  1. PROPOFOL (MANUFACTURER UNKNOWN) [Suspect]
     Active Substance: PROPOFOL
     Indication: ENDOSCOPY UPPER GASTROINTESTINAL TRACT
     Route: 042
     Dates: start: 2017
  2. LIDOCAINE. [Concomitant]
     Active Substance: LIDOCAINE
     Indication: ENDOSCOPY UPPER GASTROINTESTINAL TRACT
     Route: 042

REACTIONS (4)
  - Skin lesion [Recovered/Resolved]
  - Tachycardia [Recovered/Resolved]
  - Rash [Recovered/Resolved]
  - Hypertension [Recovered/Resolved]

NARRATIVE: CASE EVENT DATE: 2017
